FAERS Safety Report 18665117 (Version 1)
Quarter: 2020Q4

REPORT INFORMATION
  Report Type: Spontaneous
  Country: CA (occurrence: CA)
  Receive Date: 20201225
  Receipt Date: 20201225
  Transmission Date: 20210114
  Serious: Yes (Hospitalization)
  Sender: FDA-Public Use
  Company Number: CA-BAXTER-2020BAX026140

PATIENT
  Sex: Male

DRUGS (2)
  1. DIANEAL W/ DEXTROSE 2.5% [Suspect]
     Active Substance: CALCIUM CHLORIDE\DEXTROSE\MAGNESIUM CHLORIDE\SODIUM CHLORIDE\SODIUM LACTATE
     Indication: PERITONEAL DIALYSIS
     Dosage: 2 BAGS AND 1 BAGS DAILY
     Route: 033
  2. DIANEAL W/ DEXTROSE 2.5% [Suspect]
     Active Substance: CALCIUM CHLORIDE\DEXTROSE\MAGNESIUM CHLORIDE\SODIUM CHLORIDE\SODIUM LACTATE
     Dosage: DOSE INCREASED
     Route: 033

REACTIONS (5)
  - Fluid retention [Recovering/Resolving]
  - Renal failure [Unknown]
  - Anuria [Recovering/Resolving]
  - Dyspnoea [Recovering/Resolving]
  - Weight increased [Unknown]
